FAERS Safety Report 11767662 (Version 1)
Quarter: 2015Q4

REPORT INFORMATION
  Report Type: Spontaneous
  Country: US (occurrence: None)
  Receive Date: 20151120
  Receipt Date: 20151120
  Transmission Date: 20160304
  Serious: Yes (Hospitalization)
  Sender: FDA-Public Use
  Company Number: None

PATIENT
  Age: 64 Year
  Sex: Male
  Weight: 82.7 kg

DRUGS (1)
  1. DIVALPROEX [Suspect]
     Active Substance: DIVALPROEX SODIUM
     Dosage: 500 MG  OTHER  PO
     Route: 048
     Dates: end: 20141215

REACTIONS (3)
  - Abnormal behaviour [None]
  - Hepatitis acute [None]
  - Therapy change [None]

NARRATIVE: CASE EVENT DATE: 20141215
